FAERS Safety Report 25212044 (Version 2)
Quarter: 2025Q4

REPORT INFORMATION
  Report Type: Report from Study
  Country: EU (occurrence: EU)
  Receive Date: 20250418
  Receipt Date: 20251209
  Transmission Date: 20260118
  Serious: Yes (Hospitalization, Other)
  Sender: JOHNSON AND JOHNSON
  Company Number: EU-002147023-NVSC2023DE271940

PATIENT
  Age: 24 Year
  Sex: Female
  Weight: 60 kg

DRUGS (8)
  1. STELARA [Suspect]
     Active Substance: USTEKINUMAB
     Indication: Psoriasis
     Route: 058
  2. STELARA [Suspect]
     Active Substance: USTEKINUMAB
     Indication: Psoriatic arthropathy
  3. COSENTYX [Suspect]
     Active Substance: SECUKINUMAB
     Indication: Psoriasis
     Dosage: 300 MG
     Route: 058
     Dates: start: 20180523, end: 20221101
  4. COSENTYX [Suspect]
     Active Substance: SECUKINUMAB
     Indication: Psoriatic arthropathy
  5. PREDNISOLONE [Suspect]
     Active Substance: PREDNISOLONE
     Indication: Product used for unknown indication
     Dosage: 60 MG
  6. PREDNISOLONE [Suspect]
     Active Substance: PREDNISOLONE
     Dosage: 5 MG (1-0-0 )
     Dates: start: 20221212, end: 20221218
  7. PREDNISOLONE [Suspect]
     Active Substance: PREDNISOLONE
     Dosage: 20 MG
  8. NOVALGIN (METAMIZOLE SODIUM) [Suspect]
     Active Substance: METAMIZOLE SODIUM
     Indication: Pain
     Dosage: UNK

REACTIONS (20)
  - Crohn^s disease [Recovering/Resolving]
  - Agranulocytosis [Recovered/Resolved]
  - Pneumocystis test positive [Recovered/Resolved]
  - Abdominal pain [Recovering/Resolving]
  - Diarrhoea haemorrhagic [Recovering/Resolving]
  - Dizziness [Recovering/Resolving]
  - Nausea [Recovering/Resolving]
  - Chills [Recovering/Resolving]
  - Malaise [Recovering/Resolving]
  - Leukopenia [Unknown]
  - Syncope [Recovered/Resolved]
  - Pyrexia [Recovered/Resolved]
  - Shock [Recovering/Resolving]
  - Thrombophlebitis [Recovering/Resolving]
  - Sepsis [Recovered/Resolved]
  - Terminal ileitis [Recovered/Resolved]
  - Colitis [Recovered/Resolved]
  - Folliculitis [Not Recovered/Not Resolved]
  - Nasopharyngitis [Recovered/Resolved]
  - Nasopharyngitis [Recovered/Resolved]

NARRATIVE: CASE EVENT DATE: 20190520
